FAERS Safety Report 15314779 (Version 1)
Quarter: 2018Q3

REPORT INFORMATION
  Report Type: Spontaneous
  Country: US (occurrence: US)
  Receive Date: 20180815
  Receipt Date: 20180815
  Transmission Date: 20181010
  Serious: Yes (Life-Threatening, Hospitalization, Disabling, Other)
  Sender: FDA-Public Use
  Company Number: None

PATIENT
  Age: 50 Year
  Sex: Female
  Weight: 85.5 kg

DRUGS (1)
  1. VALSARTIN [Suspect]
     Active Substance: VALSARTAN

REACTIONS (11)
  - Pharyngeal oedema [None]
  - Tic [None]
  - Vertigo [None]
  - Brain operation [None]
  - Breast cancer [None]
  - Trigeminal neuralgia [None]
  - Thyroid cancer [None]
  - Nerve compression [None]
  - Basedow^s disease [None]
  - Choking sensation [None]
  - Premature menopause [None]

NARRATIVE: CASE EVENT DATE: 20170825
